FAERS Safety Report 21924657 (Version 1)
Quarter: 2023Q1

REPORT INFORMATION
  Report Type: Spontaneous
  Country: RU (occurrence: RU)
  Receive Date: 20230130
  Receipt Date: 20230130
  Transmission Date: 20230417
  Serious: Yes (Hospitalization, Other)
  Sender: FDA-Public Use
  Company Number: RU-ORGANON-O2301RUS001851

PATIENT
  Age: 42 Year
  Sex: Female

DRUGS (1)
  1. DIPROSPAN [Suspect]
     Active Substance: BETAMETHASONE DIPROPIONATE\BETAMETHASONE SODIUM PHOSPHATE
     Indication: Urticaria
     Dosage: 7 MILLIGRAM, QD
     Route: 030
     Dates: start: 20230116, end: 20230116

REACTIONS (1)
  - Anaphylactic shock [Recovering/Resolving]

NARRATIVE: CASE EVENT DATE: 20230116
